FAERS Safety Report 8348910-7 (Version None)
Quarter: 2012Q2

REPORT INFORMATION
  Report Type: 
  Country: None (occurrence: None)
  Receive Date: 20120510
  Receipt Date: 20120502
  Transmission Date: 20120825
  Serious: Yes (Other)
  Sender: FDA-Public Use
  Company Number: US-BAYER-2012-008908

PATIENT
  Age: 36 Year
  Sex: Female

DRUGS (1)
  1. MIRENA [Suspect]
     Indication: CONTRACEPTION
     Dosage: 20 MCG/24HR, CONT
     Route: 015
     Dates: start: 20120110, end: 20120126

REACTIONS (4)
  - VAGINAL HAEMORRHAGE [None]
  - MUSCLE SPASMS [None]
  - PYREXIA [None]
  - DEVICE MALFUNCTION [None]
